FAERS Safety Report 9171452 (Version 1)
Quarter: 2013Q1

REPORT INFORMATION
  Report Type: Spontaneous
  Country: US (occurrence: US)
  Receive Date: 20130319
  Receipt Date: 20130319
  Transmission Date: 20140127
  Serious: No
  Sender: FDA-Public Use
  Company Number: US-ASTRAZENECA-2013SE15066

PATIENT
  Age: 61 Year
  Sex: Female
  Weight: 65.8 kg

DRUGS (8)
  1. NEXIUM [Suspect]
     Indication: GASTROOESOPHAGEAL REFLUX DISEASE
     Route: 048
     Dates: start: 201211, end: 201301
  2. NEXIUM [Suspect]
     Indication: GASTROOESOPHAGEAL REFLUX DISEASE
     Route: 048
     Dates: end: 201302
  3. NEXIUM [Suspect]
     Indication: GASTROOESOPHAGEAL REFLUX DISEASE
     Route: 048
     Dates: start: 201302
  4. ALOE VERA [Concomitant]
     Indication: GASTROOESOPHAGEAL REFLUX DISEASE
     Dosage: 1 ONCE
     Route: 048
     Dates: start: 201212
  5. VITAMIN D [Concomitant]
     Indication: VITAMIN SUPPLEMENTATION
     Route: 048
  6. HUHI [Concomitant]
     Indication: ANTIOXIDANT THERAPY
     Route: 048
     Dates: start: 201212
  7. SAM - E [Concomitant]
     Indication: AFFECTIVE DISORDER
     Route: 048
     Dates: start: 201212
  8. SAM - E [Concomitant]
     Indication: NERVOUS SYSTEM DISORDER
     Route: 048
     Dates: start: 201212

REACTIONS (2)
  - Chest discomfort [Recovering/Resolving]
  - Off label use [Unknown]
